FAERS Safety Report 12168949 (Version 2)
Quarter: 2016Q2

REPORT INFORMATION
  Report Type: Report from Study
  Country: US (occurrence: US)
  Receive Date: 20160310
  Receipt Date: 20160406
  Transmission Date: 20160815
  Serious: Yes (Other)
  Sender: FDA-Public Use
  Company Number: US-ROCHE-1721018

PATIENT
  Age: 49 Year
  Sex: Female

DRUGS (6)
  1. ZELBORAF [Suspect]
     Active Substance: VEMURAFENIB
     Indication: METASTATIC MALIGNANT MELANOMA
     Dosage: 4 TABLETS
     Route: 048
     Dates: start: 20160215, end: 20160229
  2. COTELLIC [Suspect]
     Active Substance: COBIMETINIB
     Indication: METASTATIC MALIGNANT MELANOMA
     Dosage: 3 TABLETS DAILY FOR 21 DAYS THEN 7 DAYS OFF
     Route: 048
     Dates: start: 20160215, end: 20160229
  3. COTELLIC [Suspect]
     Active Substance: COBIMETINIB
     Dosage: 3 PILLS 3 TIMES A DAY
     Route: 048
     Dates: end: 20160229
  4. ZELBORAF [Suspect]
     Active Substance: VEMURAFENIB
     Dosage: 240 MG TABLETS,3 TABS EVERY 12 HRS
     Route: 048
     Dates: start: 20160215, end: 20160229
  5. ZELBORAF [Suspect]
     Active Substance: VEMURAFENIB
     Dosage: 3 PILLS TWICE A DAY
     Route: 048
     Dates: end: 20160229
  6. LISINOPRIL. [Concomitant]
     Active Substance: LISINOPRIL
     Indication: BLOOD PRESSURE MEASUREMENT

REACTIONS (4)
  - Periorbital oedema [Not Recovered/Not Resolved]
  - Rash macular [Not Recovered/Not Resolved]
  - Pruritus [Not Recovered/Not Resolved]
  - Pruritus generalised [Not Recovered/Not Resolved]

NARRATIVE: CASE EVENT DATE: 20160229
